FAERS Safety Report 17407839 (Version 1)
Quarter: 2020Q1

REPORT INFORMATION
  Report Type: Spontaneous
  Country: US (occurrence: US)
  Receive Date: 20200212
  Receipt Date: 20200212
  Transmission Date: 20200409
  Serious: No
  Sender: FDA-Public Use
  Company Number: US-PFIZER INC-2020057273

PATIENT
  Age: 38 Year
  Sex: Male

DRUGS (11)
  1. KLONOPIN [Concomitant]
     Active Substance: CLONAZEPAM
     Dosage: UNK
  2. DEPLIN [Concomitant]
     Active Substance: LEVOMEFOLATE CALCIUM
     Dosage: UNK
  3. VITAMIN D [ERGOCALCIFEROL] [Suspect]
     Active Substance: ERGOCALCIFEROL
     Dosage: UNK
  4. IBUPROFEN. [Concomitant]
     Active Substance: IBUPROFEN
     Dosage: UNK
  5. KRATOM [Concomitant]
     Active Substance: HERBALS\MITRAGYNINE
     Dosage: UNK
  6. HETLIOZ [Suspect]
     Active Substance: TASIMELTEON
     Indication: CIRCADIAN RHYTHM SLEEP DISORDER
     Dosage: 20 MG, 1X/DAY
     Route: 048
     Dates: start: 20170406
  7. HETLIOZ [Suspect]
     Active Substance: TASIMELTEON
     Dosage: 20 MG, 1X/DAY
     Route: 048
     Dates: start: 20170406
  8. MITRAGYNA SPECIOSA [Concomitant]
     Active Substance: HERBALS\MITRAGYNINE
     Dosage: UNK
  9. ENLYTE [Concomitant]
     Active Substance: CALCIUM ASCORBATE\CALCIUM THREONATE\COBALAMIN\COCARBOXYLASE\FERROUS GLUCONATE\FISH OIL\FLAVIN ADENINE DINUCLEOTIDE\FOLIC ACID\LEUCOVORIN CALCIUM\LEVOMEFOLIC ACID\METHYLCOBALAMIN\NADIDE\PYRIDOXAL 5-PHOSPHATE
     Dosage: UNK
  10. ALPRAZOLAM. [Suspect]
     Active Substance: ALPRAZOLAM
     Dosage: UNK [DECREASE THE DAILY DOSE BY 25% EVERY 2 WEEKS]
  11. XANAX [Concomitant]
     Active Substance: ALPRAZOLAM
     Dosage: 2 MG, 1X/DAY [EVERY NIGHT]

REACTIONS (4)
  - Impaired work ability [Unknown]
  - Fatigue [Unknown]
  - Malaise [Unknown]
  - Feeling abnormal [Unknown]
